FAERS Safety Report 21736188 (Version 1)
Quarter: 2022Q4

REPORT INFORMATION
  Report Type: Spontaneous
  Country: CA (occurrence: CA)
  Receive Date: 20221215
  Receipt Date: 20221215
  Transmission Date: 20230112
  Serious: Yes (Congenital Anomaly)
  Sender: FDA-Public Use
  Company Number: CA-BIOMARINAP-CA-2022-147500

PATIENT

DRUGS (12)
  1. VIMIZIM [Suspect]
     Active Substance: ELOSULFASE ALFA
     Indication: Mucopolysaccharidosis IV
     Dosage: 2 MILLIGRAM/KILOGRAM, QW
     Route: 042
     Dates: start: 20141028
  2. LYRICA [Concomitant]
     Active Substance: PREGABALIN
     Indication: Pain
     Dosage: 75 MILLIGRAM, QD
     Route: 048
     Dates: start: 2016
  3. LYRICA [Concomitant]
     Active Substance: PREGABALIN
     Dosage: 225 UNK, QD
     Route: 048
  4. ROBAXACET [Concomitant]
     Active Substance: ACETAMINOPHEN\METHOCARBAMOL
     Indication: Back pain
     Dosage: UNK, PRN
     Route: 048
  5. NAPROSYN [Concomitant]
     Active Substance: NAPROXEN
     Indication: Back pain
     Dosage: 250 MILLIGRAM, PRN
     Route: 048
  6. NABILONE [Concomitant]
     Active Substance: NABILONE
     Indication: Pain
     Dosage: 0.25 MILLIGRAM, QD
     Route: 048
     Dates: start: 201704
  7. NABILONE [Concomitant]
     Active Substance: NABILONE
     Dosage: 0.50 MILLIGRAM, QD
     Route: 048
     Dates: start: 201704
  8. NEURONTIN [Concomitant]
     Active Substance: GABAPENTIN
     Indication: Pain
     Dosage: 900 MILLIGRAM, QD
     Route: 065
     Dates: start: 2021
  9. NEURONTIN [Concomitant]
     Active Substance: GABAPENTIN
     Dosage: 300 MILLIGRAM, QD
     Route: 065
     Dates: start: 2021
  10. METHYLPHENIDATE [Concomitant]
     Active Substance: METHYLPHENIDATE
     Indication: Pain
     Dosage: 200 MILLIGRAM, QD
     Route: 065
     Dates: start: 2021
  11. FLEXERIL [Concomitant]
     Active Substance: CYCLOBENZAPRINE HYDROCHLORIDE
     Indication: Pain
     Dosage: 10 MILLIGRAM, QD
     Route: 065
     Dates: start: 2021
  12. Reactine [Concomitant]
     Indication: Premedication
     Dosage: 10 MILLIGRAM, SINGLE
     Route: 048

REACTIONS (1)
  - Pituitary tumour [Not Recovered/Not Resolved]

NARRATIVE: CASE EVENT DATE: 20220101
